FAERS Safety Report 11898889 (Version 1)
Quarter: 2016Q1

REPORT INFORMATION
  Report Type: Report from Study
  Country: US (occurrence: US)
  Receive Date: 20160108
  Receipt Date: 20160108
  Transmission Date: 20160526
  Serious: Yes (Other)
  Sender: FDA-Public Use
  Company Number: US-GILEAD-2015-0180667

PATIENT
  Age: 67 Year
  Sex: Female

DRUGS (19)
  1. SYMBICORT [Concomitant]
     Active Substance: BUDESONIDE\FORMOTEROL FUMARATE DIHYDRATE
  2. REMODULIN [Suspect]
     Active Substance: TREPROSTINIL
     Indication: PULMONARY ARTERIAL HYPERTENSION
     Dosage: 0.07 UG/KG/MIN, UNK
     Route: 042
     Dates: start: 20140711
  3. CYMBALTA [Concomitant]
     Active Substance: DULOXETINE HYDROCHLORIDE
  4. LIPITOR [Concomitant]
     Active Substance: ATORVASTATIN CALCIUM
  5. ACIPHEX [Concomitant]
     Active Substance: RABEPRAZOLE SODIUM
  6. PLAVIX [Concomitant]
     Active Substance: CLOPIDOGREL BISULFATE
  7. SPIRIVA [Concomitant]
     Active Substance: TIOTROPIUM BROMIDE MONOHYDRATE
  8. LASIX [Concomitant]
     Active Substance: FUROSEMIDE
  9. ADCIRCA [Suspect]
     Active Substance: TADALAFIL
     Indication: PRODUCT USED FOR UNKNOWN INDICATION
     Dosage: UNK
     Route: 065
  10. TRACLEER [Suspect]
     Active Substance: BOSENTAN
     Indication: PRODUCT USED FOR UNKNOWN INDICATION
     Route: 065
  11. INFLUENZA VACCINE [Suspect]
     Active Substance: INFLUENZA VIRUS VACCINE
     Indication: PRODUCT USED FOR UNKNOWN INDICATION
     Dosage: UNK
     Route: 065
     Dates: start: 20151020, end: 20151020
  12. AMBRISENTAN [Suspect]
     Active Substance: AMBRISENTAN
     Indication: PULMONARY ARTERIAL HYPERTENSION
     Dosage: 10 MG, QD
     Route: 065
     Dates: start: 20151019
  13. REMODULIN [Suspect]
     Active Substance: TREPROSTINIL
     Dosage: 0.062 UG/KG/MIN
     Route: 042
     Dates: start: 20140730
  14. REMODULIN [Suspect]
     Active Substance: TREPROSTINIL
     Dosage: 0.062 UG/KG/MIN
     Route: 042
     Dates: start: 20140731
  15. POTASSIUM [Concomitant]
     Active Substance: POTASSIUM
  16. CALCIUM + VIT D [Concomitant]
     Active Substance: CALCIUM\VITAMIN D
  17. BONIVA [Concomitant]
     Active Substance: IBANDRONATE SODIUM
  18. FUROSEMIDE. [Concomitant]
     Active Substance: FUROSEMIDE
  19. XOPENEX [Concomitant]
     Active Substance: LEVALBUTEROL HYDROCHLORIDE

REACTIONS (1)
  - Oxygen saturation decreased [Unknown]

NARRATIVE: CASE EVENT DATE: 20151026
